FAERS Safety Report 19952728 (Version 1)
Quarter: 2021Q4

REPORT INFORMATION
  Report Type: Spontaneous
  Country: GB (occurrence: GB)
  Receive Date: 20211014
  Receipt Date: 20211014
  Transmission Date: 20220303
  Serious: Yes (Disabling, Other)
  Sender: FDA-Public Use
  Company Number: None

PATIENT
  Age: 66 Year
  Sex: Female
  Weight: 87.99 kg

DRUGS (2)
  1. ALENDRONATE SODIUM [Suspect]
     Active Substance: ALENDRONATE SODIUM
     Indication: Ill-defined disorder
     Dosage: 70 MG
     Route: 048
     Dates: start: 20210122, end: 20210127
  2. LEVOTHYROXINE [Concomitant]
     Active Substance: LEVOTHYROXINE
     Indication: Ill-defined disorder
     Dosage: UNK

REACTIONS (7)
  - Pain [Unknown]
  - Peripheral swelling [Unknown]
  - Peripheral swelling [Unknown]
  - Peripheral swelling [Unknown]
  - Peripheral swelling [Unknown]
  - Joint swelling [Unknown]
  - Gait inability [Unknown]
